FAERS Safety Report 4607763-0 (Version None)
Quarter: 2005Q1

REPORT INFORMATION
  Report Type: 
  Country: None (occurrence: None)
  Receive Date: 20050314
  Receipt Date: 20050210
  Transmission Date: 20050727
  Serious: Yes (Hospitalization)
  Sender: FDA-Public Use
  Company Number: FR-GLAXOSMITHKLINE-B0370895A

PATIENT
  Age: 19 Year
  Sex: Female

DRUGS (3)
  1. CLAMOXYL [Suspect]
     Route: 048
     Dates: start: 20041220, end: 20041226
  2. ZECLAR [Suspect]
     Route: 048
     Dates: start: 20041220, end: 20041226
  3. NEXIUM [Suspect]
     Dosage: 30MG PER DAY
     Route: 048
     Dates: start: 20041220, end: 20050117

REACTIONS (13)
  - ANAEMIA [None]
  - BILIRUBIN CONJUGATED INCREASED [None]
  - BLOOD BILIRUBIN INCREASED [None]
  - BLOOD LACTATE DEHYDROGENASE INCREASED [None]
  - DYSPNOEA EXERTIONAL [None]
  - HAEMOGLOBIN DECREASED [None]
  - HEADACHE [None]
  - JAUNDICE [None]
  - PETECHIAE [None]
  - PLATELET COUNT DECREASED [None]
  - PURPURA [None]
  - RED BLOOD CELL SCHISTOCYTES PRESENT [None]
  - THROMBOTIC THROMBOCYTOPENIC PURPURA [None]
